FAERS Safety Report 25722202 (Version 1)
Quarter: 2025Q3

REPORT INFORMATION
  Report Type: Spontaneous
  Country: US (occurrence: None)
  Receive Date: 20250824
  Receipt Date: 20250824
  Transmission Date: 20251021
  Serious: Yes (unspecified)
  Sender: FDA-CTU
  Company Number: None

PATIENT
  Age: 55 Year
  Sex: Female
  Weight: 76.5 kg

DRUGS (9)
  1. TRICHLOROACETIC ACID [Suspect]
     Active Substance: TRICHLOROACETIC ACID
     Indication: Skin exfoliation
     Dates: start: 20250819, end: 20250820
  2. PROZAC [Concomitant]
     Active Substance: FLUOXETINE HYDROCHLORIDE
  3. WELLBUTRIN [Concomitant]
     Active Substance: BUPROPION HYDROCHLORIDE
  4. LAMICTAL [Concomitant]
     Active Substance: LAMOTRIGINE
  5. Estradoil [Concomitant]
  6. PROTONIX [Concomitant]
     Active Substance: PANTOPRAZOLE SODIUM
  7. LOSARTAN [Concomitant]
     Active Substance: LOSARTAN
  8. PROGESTERONE [Concomitant]
     Active Substance: PROGESTERONE
  9. VITAMINS [Concomitant]
     Active Substance: VITAMINS

REACTIONS (1)
  - Application site burn [None]

NARRATIVE: CASE EVENT DATE: 20250822
